FAERS Safety Report 9795761 (Version 2)
Quarter: 2014Q1

REPORT INFORMATION
  Report Type: Report from Study
  Country: US (occurrence: US)
  Receive Date: 20140103
  Receipt Date: 20140103
  Transmission Date: 20141002
  Serious: Yes (Hospitalization, Other)
  Sender: FDA-Public Use
  Company Number: PHEH2013US019403

PATIENT
  Age: 65 Year
  Sex: Female
  Weight: 113.38 kg

DRUGS (2)
  1. GILENYA [Suspect]
     Indication: MULTIPLE SCLEROSIS
     Dosage: 0.5 MG, QD
     Route: 048
     Dates: start: 20130829
  2. CORTICOSTEROIDS [Concomitant]

REACTIONS (19)
  - Blood glucose increased [Recovering/Resolving]
  - Gastrointestinal disorder [Unknown]
  - Feeling abnormal [Unknown]
  - Confusional state [Unknown]
  - Rhinorrhoea [Unknown]
  - Hypersensitivity [Unknown]
  - Bone density decreased [Unknown]
  - Sinus disorder [Unknown]
  - Abdominal pain [Not Recovered/Not Resolved]
  - Malaise [Unknown]
  - Anxiety [Unknown]
  - Fatigue [Unknown]
  - Overweight [Unknown]
  - Headache [Recovered/Resolved]
  - Dizziness [Unknown]
  - Asthenia [Recovering/Resolving]
  - Multiple sclerosis relapse [Unknown]
  - Memory impairment [Unknown]
  - Drug ineffective [Unknown]
